FAERS Safety Report 14636689 (Version 1)
Quarter: 2018Q1

REPORT INFORMATION
  Report Type: Spontaneous
  Country: US (occurrence: US)
  Receive Date: 20180314
  Receipt Date: 20180314
  Transmission Date: 20180509
  Serious: No
  Sender: FDA-Public Use
  Company Number: US-TEVA-2018-US-858209

PATIENT
  Sex: Female

DRUGS (1)
  1. LIDOCAINE. [Suspect]
     Active Substance: LIDOCAINE
     Route: 061
     Dates: start: 20170826, end: 20180116

REACTIONS (3)
  - Alopecia [Unknown]
  - Drug ineffective [Unknown]
  - Pruritus [Unknown]
